FAERS Safety Report 11210689 (Version 2)
Quarter: 2015Q4

REPORT INFORMATION
  Report Type: Report from Study
  Country: US (occurrence: US)
  Receive Date: 20150622
  Receipt Date: 20151016
  Transmission Date: 20160304
  Serious: Yes (Hospitalization, Other)
  Sender: FDA-Public Use
  Company Number: US-GILEAD-2015-0159156

PATIENT
  Age: 71 Year
  Sex: Male

DRUGS (1)
  1. RANOLAZINE [Suspect]
     Active Substance: RANOLAZINE
     Indication: ANGINA PECTORIS
     Dosage: 500 MG, UNK
     Route: 048
     Dates: start: 2013, end: 20150708

REACTIONS (3)
  - Swelling [Unknown]
  - Fall [Unknown]
  - Chronic inflammatory demyelinating polyradiculoneuropathy [Unknown]
